FAERS Safety Report 4749683-7 (Version None)
Quarter: 2005Q3

REPORT INFORMATION
  Report Type: 
  Country: None (occurrence: None)
  Receive Date: 20050822
  Receipt Date: 20050812
  Transmission Date: 20060218
  Serious: Yes (Other)
  Sender: FDA-Public Use
  Company Number: AU-ROCHE-414377

PATIENT
  Age: 49 Year
  Sex: Female

DRUGS (1)
  1. XELODA [Suspect]
     Indication: DRUG USE FOR UNKNOWN INDICATION
     Dosage: FIRST CYCLE: 4 TABLETS BID AND SECOND AND THIRD CYCLE: 5 TABLETS BID. CURRENTLY RECEIVING 1500MG BI+
     Route: 048

REACTIONS (2)
  - INTESTINAL OBSTRUCTION [None]
  - RASH [None]
